FAERS Safety Report 22104975 (Version 2)
Quarter: 2023Q2

REPORT INFORMATION
  Report Type: Spontaneous
  Country: US (occurrence: US)
  Receive Date: 20230316
  Receipt Date: 20230601
  Transmission Date: 20230721
  Serious: Yes (Other)
  Sender: FDA-Public Use
  Company Number: US-ALLERGAN-2304692US

PATIENT
  Age: 80 Year
  Sex: Male
  Weight: 81.633 kg

DRUGS (3)
  1. DURYSTA [Suspect]
     Active Substance: BIMATOPROST
     Indication: Product used for unknown indication
     Dosage: 0.01 MG, SINGLE
     Route: 031
     Dates: start: 20221103, end: 20230213
  2. TAMOXIFEN [Concomitant]
     Active Substance: TAMOXIFEN
     Indication: Prostate cancer
     Dosage: 10 MG
  3. LISINOPRIL [Concomitant]
     Active Substance: LISINOPRIL
     Indication: Hypertension
     Dosage: 10 MG

REACTIONS (3)
  - Corneal touch [Recovered/Resolved]
  - Visual impairment [Recovered/Resolved]
  - Eye pain [Recovered/Resolved]

NARRATIVE: CASE EVENT DATE: 20221223
